FAERS Safety Report 4975886-2 (Version None)
Quarter: 2006Q2

REPORT INFORMATION
  Report Type: 
  Country: None (occurrence: None)
  Receive Date: 20060411
  Receipt Date: 20060330
  Transmission Date: 20061013
  Serious: Yes (Other)
  Sender: FDA-Public Use
  Company Number: 2006044916

PATIENT
  Age: 28 Year
  Sex: Female

DRUGS (2)
  1. DEPO-SYBQ PROVERA 104 (MEDROXYPROIGESTERONE ACETATE) [Suspect]
     Indication: CONTRACEPTION
     Dosage: (FIRST INJECTION), SUBCUTANEOUS
     Route: 058
     Dates: start: 20060308, end: 20060308
  2. DEPO-SYBQ PROVERA 104 (MEDROXYPROIGESTERONE ACETATE) [Suspect]
     Indication: CONTRACEPTION
     Dosage: (FIRST INJECTION), SUBCUTANEOUS
     Route: 058
     Dates: start: 20060308, end: 20060308

REACTIONS (2)
  - FALL [None]
  - INJECTION SITE CYST [None]
